FAERS Safety Report 9199769 (Version 1)
Quarter: 2013Q1

REPORT INFORMATION
  Report Type: Spontaneous
  Country: US (occurrence: None)
  Receive Date: 20130328
  Receipt Date: 20130328
  Transmission Date: 20140127
  Serious: Yes (Hospitalization)
  Sender: FDA-Public Use
  Company Number: None

PATIENT
  Age: 88 Year
  Sex: Male
  Weight: 86.18 kg

DRUGS (1)
  1. LANTUS SOLOSTAR 100 UNITS/ML [Suspect]
     Indication: DIABETES MELLITUS
     Dosage: 100 UNITS AM AND PM ID ROUTE
     Route: 023
     Dates: start: 20120101, end: 20130327

REACTIONS (4)
  - Blood glucose increased [None]
  - Wrong technique in drug usage process [None]
  - Drug administration error [None]
  - Device component issue [None]
